FAERS Safety Report 8022848-7 (Version None)
Quarter: 2011Q4

REPORT INFORMATION
  Report Type: 
  Country: None (occurrence: None)
  Receive Date: 20111123
  Receipt Date: 20110728
  Transmission Date: 20120403
  Serious: No
  Sender: FDA-Public Use
  Company Number: 337440

PATIENT
  Age: 53 Year
  Sex: Female

DRUGS (1)
  1. VICTOZA [Suspect]
     Indication: TYPE 2 DIABETES MELLITUS
     Dosage: 1.2 MG, QD, SUBCUTANEOUS
     Route: 058
     Dates: start: 20110725

REACTIONS (7)
  - NAUSEA [None]
  - FLATULENCE [None]
  - HYPOPNOEA [None]
  - ERUCTATION [None]
  - CHEST DISCOMFORT [None]
  - HEADACHE [None]
  - DECREASED APPETITE [None]
